FAERS Safety Report 18493888 (Version 3)
Quarter: 2020Q4

REPORT INFORMATION
  Report Type: Report from Study
  Country: CO (occurrence: CO)
  Receive Date: 20201111
  Receipt Date: 20201224
  Transmission Date: 20210114
  Serious: Yes (Life-Threatening, Other)
  Sender: FDA-Public Use
  Company Number: CO-TAKEDA-CO202012933

PATIENT
  Age: 41 Year
  Sex: Female
  Weight: 79 kg

DRUGS (12)
  1. ICATIBANT [Suspect]
     Active Substance: ICATIBANT ACETATE
     Dosage: 30 MG / 3 ML, UNKNOWN
     Route: 065
     Dates: start: 20200430, end: 20200430
  2. ICATIBANT [Suspect]
     Active Substance: ICATIBANT ACETATE
     Indication: HEREDITARY ANGIOEDEMA
     Dosage: 30 MG / 3 ML, UNKNOWN
     Route: 058
     Dates: start: 20181012
  3. ICATIBANT [Suspect]
     Active Substance: ICATIBANT ACETATE
     Dosage: 30 MG / 3 ML, PRN
     Route: 065
     Dates: start: 20200527, end: 20200527
  4. ICATIBANT [Suspect]
     Active Substance: ICATIBANT ACETATE
     Dosage: 30 MG / 3 ML, UNKNOWN
     Route: 065
     Dates: start: 20200430, end: 20200430
  5. ICATIBANT [Suspect]
     Active Substance: ICATIBANT ACETATE
     Dosage: 30 MG / 3 ML, UNKNOWN
     Route: 065
     Dates: start: 20200515, end: 20200515
  6. ICATIBANT [Suspect]
     Active Substance: ICATIBANT ACETATE
     Dosage: 30 MG / 3 ML, UNKNOWN
     Route: 065
     Dates: start: 20200515, end: 20200515
  7. ICATIBANT [Suspect]
     Active Substance: ICATIBANT ACETATE
     Dosage: 30 MG / 3 ML, UNKNOWN
     Route: 065
     Dates: start: 20200624, end: 20200624
  8. ICATIBANT [Suspect]
     Active Substance: ICATIBANT ACETATE
     Indication: HEREDITARY ANGIOEDEMA
     Dosage: 30 MG / 3 ML, UNKNOWN
     Route: 058
     Dates: start: 20181012
  9. ICATIBANT [Suspect]
     Active Substance: ICATIBANT ACETATE
     Dosage: 30 MG / 3 ML, UNKNOWN
     Route: 065
     Dates: start: 20200624, end: 20200624
  10. ICATIBANT [Suspect]
     Active Substance: ICATIBANT ACETATE
     Dosage: 30 MG / 3 ML, UNKNOWN
     Route: 065
     Dates: start: 20200723, end: 20200725
  11. ICATIBANT [Suspect]
     Active Substance: ICATIBANT ACETATE
     Dosage: 30 MG / 3 ML, UNKNOWN
     Route: 065
     Dates: start: 20200723, end: 20200725
  12. ICATIBANT [Suspect]
     Active Substance: ICATIBANT ACETATE
     Dosage: 30 MG / 3 ML, PRN
     Route: 065
     Dates: start: 20200527, end: 20200527

REACTIONS (7)
  - Cough [Recovering/Resolving]
  - Myalgia [Recovering/Resolving]
  - Hereditary angioedema [Recovered/Resolved]
  - COVID-19 [Recovered/Resolved]
  - Fatigue [Recovered/Resolved]
  - Weight decreased [Recovered/Resolved]
  - Pyrexia [Recovered/Resolved]

NARRATIVE: CASE EVENT DATE: 20200406
